FAERS Safety Report 9777738 (Version 2)
Quarter: 2013Q4

REPORT INFORMATION
  Report Type: Report from Study
  Country: US (occurrence: US)
  Receive Date: 20131223
  Receipt Date: 20131223
  Transmission Date: 20140711
  Serious: Yes (Death, Other)
  Sender: FDA-Public Use
  Company Number: US-ROCHE-1277847

PATIENT
  Sex: 0

DRUGS (13)
  1. RITUXIMAB [Suspect]
     Indication: RENAL TRANSPLANT
     Route: 065
  2. RITUXIMAB [Suspect]
     Route: 065
  3. MYCOPHENOLATE MOFETIL [Suspect]
     Indication: IMMUNOSUPPRESSION
     Route: 065
  4. MYCOPHENOLATE MOFETIL [Suspect]
     Route: 065
  5. BORTEZOMIB [Suspect]
     Indication: RENAL TRANSPLANT
     Route: 065
  6. TACROLIMUS [Suspect]
     Indication: IMMUNOSUPPRESSION
     Route: 065
  7. RATG [Suspect]
     Indication: RENAL TRANSPLANT
     Route: 065
  8. PREDNISONE [Suspect]
     Indication: IMMUNOSUPPRESSION
     Route: 065
  9. VALGANCICLOVIR [Concomitant]
     Route: 065
  10. NYSTATIN [Concomitant]
  11. SULFAMETHOXAZOLE/TRIMETHOPRIM [Concomitant]
     Route: 065
  12. PENTAMIDINE [Concomitant]
  13. DAPSONE [Concomitant]

REACTIONS (11)
  - Lupus vasculitis [Fatal]
  - Anaemia [Unknown]
  - Neutropenia [Unknown]
  - Thrombocytopenia [Unknown]
  - Nausea [Unknown]
  - Vomiting [Unknown]
  - Diarrhoea [Unknown]
  - Cytomegalovirus viraemia [Unknown]
  - Epstein-Barr viraemia [Unknown]
  - Viraemia [Unknown]
  - Polyomavirus-associated nephropathy [Unknown]
